FAERS Safety Report 7468164-3 (Version None)
Quarter: 2011Q2

REPORT INFORMATION
  Report Type: 
  Country: None (occurrence: None)
  Receive Date: 20110509
  Receipt Date: 20110408
  Transmission Date: 20111010
  Serious: Yes (Other)
  Sender: FDA-Public Use
  Company Number: US-BAYER-201031233NA

PATIENT
  Age: 48 Year
  Sex: Female

DRUGS (11)
  1. AMITIZA [Concomitant]
     Dosage: 8 ?G, QD
  2. ALEVE [Concomitant]
     Dosage: UNK
     Dates: start: 19800101
  3. LODINE [Concomitant]
  4. MUCINEX [Concomitant]
     Indication: ATELECTASIS
  5. ZITHROMAX [Concomitant]
     Indication: ATELECTASIS
  6. IBUPROFEN (ADVIL) [Concomitant]
     Dosage: UNK
     Dates: start: 20091001
  7. ZITHROMAX [Concomitant]
     Indication: PNEUMONIA
  8. ROBAXIN [Concomitant]
  9. MUCINEX [Concomitant]
     Indication: PNEUMONIA
  10. YAZ [Suspect]
     Indication: MENSTRUAL CYCLE MANAGEMENT
     Dosage: UNK
     Dates: end: 20091001
  11. ETODOLAC [Concomitant]
     Dosage: UNK
     Dates: start: 20091001

REACTIONS (5)
  - DYSPNOEA [None]
  - PAIN [None]
  - DEEP VEIN THROMBOSIS [None]
  - CHEST PAIN [None]
  - PULMONARY EMBOLISM [None]
